FAERS Safety Report 19854104 (Version 2)
Quarter: 2021Q3

REPORT INFORMATION
  Report Type: Spontaneous
  Country: US (occurrence: US)
  Receive Date: 20210920
  Receipt Date: 20210920
  Transmission Date: 20211014
  Serious: Yes (Hospitalization)
  Sender: FDA-Public Use
  Company Number: US-GILEAD-2021-0548832

PATIENT
  Age: 58 Year
  Sex: Female

DRUGS (4)
  1. HYDROCHLOROTHIAZIDE. [Concomitant]
     Active Substance: HYDROCHLOROTHIAZIDE
  2. CEPHALEX [CEFALEXIN] [Concomitant]
  3. SOFOSBUVIR;VELPATASVIR [Suspect]
     Active Substance: SOFOSBUVIR\VELPATASVIR
     Indication: CHRONIC HEPATITIS C
     Dosage: 1 DOSAGE FORM, QD
     Route: 048
  4. LETROZOLE. [Concomitant]
     Active Substance: LETROZOLE

REACTIONS (6)
  - Accidental overdose [Unknown]
  - Unevaluable event [Unknown]
  - Dyspepsia [Not Recovered/Not Resolved]
  - Foot operation [Unknown]
  - Gastrooesophageal reflux disease [Unknown]
  - Intentional dose omission [Unknown]
